FAERS Safety Report 14653570 (Version 2)
Quarter: 2018Q2

REPORT INFORMATION
  Report Type: Report from Study
  Country: US (occurrence: US)
  Receive Date: 20180319
  Receipt Date: 20180416
  Transmission Date: 20180711
  Serious: Yes (Hospitalization, Other)
  Sender: FDA-Public Use
  Company Number: US-GILEAD-2018-0326211

PATIENT
  Age: 72 Year
  Sex: Female

DRUGS (12)
  1. AMBRISENTAN [Suspect]
     Active Substance: AMBRISENTAN
     Indication: PULMONARY HYPERTENSION
     Dosage: 10 MG, QD
     Route: 065
  2. SILDENAFIL. [Concomitant]
     Active Substance: SILDENAFIL
  3. IPRATROPIUM BROMIDE/ALBUTEROL SULFATE [Concomitant]
     Active Substance: ALBUTEROL SULFATE\IPRATROPIUM BROMIDE
  4. NYSTATIN. [Concomitant]
     Active Substance: NYSTATIN
  5. LOPRESSOR [Concomitant]
     Active Substance: METOPROLOL TARTRATE
  6. LASIX [Concomitant]
     Active Substance: FUROSEMIDE
  7. ROBITUSSIN DM [Concomitant]
     Active Substance: DEXTROMETHORPHAN HYDROBROMIDE\GUAIFENESIN
  8. HUMULIN N [Concomitant]
     Active Substance: INSULIN HUMAN
  9. COLACE [Concomitant]
     Active Substance: DOCUSATE SODIUM
  10. TRAMADOL. [Concomitant]
     Active Substance: TRAMADOL
  11. ALBUTEROL                          /00139501/ [Concomitant]
     Active Substance: ALBUTEROL
  12. PANTOPRAZOLE [Concomitant]
     Active Substance: PANTOPRAZOLE

REACTIONS (5)
  - Dyspnoea [Unknown]
  - Swelling [Unknown]
  - Cardiac failure [Unknown]
  - Chest discomfort [Unknown]
  - Renal failure [Unknown]
